FAERS Safety Report 17022088 (Version 2)
Quarter: 2019Q4

REPORT INFORMATION
  Report Type: Spontaneous
  Country: US (occurrence: US)
  Receive Date: 20191112
  Receipt Date: 20191118
  Transmission Date: 20200122
  Serious: Yes (Hospitalization)
  Sender: FDA-Public Use
  Company Number: US-BAUSCH-BL-2019-060903

PATIENT
  Age: 68 Year
  Sex: Female

DRUGS (2)
  1. FLAGYL [Suspect]
     Active Substance: METRONIDAZOLE\METRONIDAZOLE HYDROCHLORIDE
     Indication: CLOSTRIDIUM DIFFICILE INFECTION
     Route: 065
  2. CEFTRIAXONE. [Concomitant]
     Active Substance: CEFTRIAXONE
     Indication: CLOSTRIDIUM DIFFICILE INFECTION

REACTIONS (3)
  - Cerebellar infarction [Recovered/Resolved]
  - Central nervous system lesion [Recovered/Resolved]
  - Neurotoxicity [Recovered/Resolved]
